FAERS Safety Report 10641191 (Version 2)
Quarter: 2014Q4

REPORT INFORMATION
  Report Type: Spontaneous
  Country: US (occurrence: US)
  Receive Date: 20141209
  Receipt Date: 20141209
  Transmission Date: 20150529
  Serious: No
  Sender: FDA-Public Use
  Company Number: US-GLAXOSMITHKLINE-A1086887A

PATIENT

DRUGS (6)
  1. B12 SOLUTION FOR INJECTION [Concomitant]
  2. LEVOTHYROXINE [Concomitant]
     Active Substance: LEVOTHYROXINE
  3. PROMACTA [Suspect]
     Active Substance: ELTROMBOPAG OLAMINE
     Indication: IMMUNE THROMBOCYTOPENIC PURPURA
     Route: 065
     Dates: start: 201406
  4. PROMACTA [Suspect]
     Active Substance: ELTROMBOPAG OLAMINE
     Indication: IMMUNE THROMBOCYTOPENIC PURPURA
     Dosage: 50 MG, U
  5. PREDNISONE. [Concomitant]
     Active Substance: PREDNISONE
  6. FOLIC ACID. [Concomitant]
     Active Substance: FOLIC ACID

REACTIONS (20)
  - Tongue coated [Unknown]
  - Pain in extremity [Unknown]
  - Medication residue present [Unknown]
  - Oral mucosal eruption [Unknown]
  - Joint swelling [Unknown]
  - Abdominal distension [Unknown]
  - Dry mouth [Unknown]
  - Rash macular [Unknown]
  - Rash [Unknown]
  - Platelet count decreased [Unknown]
  - Skin warm [Not Recovered/Not Resolved]
  - Discomfort [Unknown]
  - Arthralgia [Unknown]
  - Vasodilatation [Unknown]
  - Peripheral swelling [Unknown]
  - Dysgeusia [Unknown]
  - Paraesthesia [Unknown]
  - Erythema [Unknown]
  - Ageusia [Unknown]
  - Hypoaesthesia [Unknown]
